FAERS Safety Report 17544302 (Version 1)
Quarter: 2020Q1

REPORT INFORMATION
  Report Type: Report from Study
  Country: GB (occurrence: GB)
  Receive Date: 20200316
  Receipt Date: 20200316
  Transmission Date: 20200409
  Serious: Yes (Death, Life-Threatening, Hospitalization, Other)
  Sender: FDA-Public Use
  Company Number: NVSC2018GB000616

PATIENT
  Age: 2 Year
  Sex: Male
  Weight: 6.1 kg

DRUGS (3)
  1. ONASEMNOGENE ABEPARVOVEC [Suspect]
     Active Substance: ONASEMNOGENE ABEPARVOVEC
     Indication: SPINAL MUSCULAR ATROPHY
     Dosage: 33 ML, ONCE/SINGLE
     Route: 042
     Dates: start: 20181204
  2. PREDNISOLONE. [Concomitant]
     Active Substance: PREDNISOLONE
     Indication: PRODUCT USED FOR UNKNOWN INDICATION
     Dosage: 5.8 ML, ONCE/SINGLE
     Route: 065
     Dates: start: 20181203
  3. HYDROCORTISONE. [Concomitant]
     Active Substance: HYDROCORTISONE
     Indication: PRODUCT USED FOR UNKNOWN INDICATION
     Dosage: UNK
     Route: 065
     Dates: start: 20181231

REACTIONS (10)
  - Hypoxic-ischaemic encephalopathy [Fatal]
  - Bronchiolitis [Recovered/Resolved]
  - Coagulation test abnormal [Not Recovered/Not Resolved]
  - Alanine aminotransferase increased [Recovered/Resolved]
  - Thrombocytopenia [Recovered/Resolved]
  - Respiratory distress [Recovered/Resolved]
  - Brain injury [Fatal]
  - Hypernatraemia [Not Recovered/Not Resolved]
  - Aspartate aminotransferase increased [Not Recovered/Not Resolved]
  - Respiratory failure [Fatal]

NARRATIVE: CASE EVENT DATE: 20181216
